FAERS Safety Report 6589999-5 (Version None)
Quarter: 2010Q1

REPORT INFORMATION
  Report Type: 
  Country: None (occurrence: None)
  Receive Date: 20100219
  Receipt Date: 20100208
  Transmission Date: 20100710
  Serious: Yes (Other)
  Sender: FDA-Public Use
  Company Number: PHEH2007US09429

PATIENT
  Sex: Male
  Weight: 94.331 kg

DRUGS (27)
  1. ZOMETA [Suspect]
     Dosage: 4 MG, QMO
     Dates: start: 20050308, end: 20051201
  2. COMPAZINE [Concomitant]
  3. ACETAMINOPHEN AND HYDROCODONE BITARTRATE [Concomitant]
  4. SENOKOT                                 /UNK/ [Concomitant]
  5. ACIPHEX [Concomitant]
  6. CLINDAMYCIN [Concomitant]
  7. ADVIL [Concomitant]
  8. BENZONATATE [Concomitant]
  9. LIDOCAINE [Concomitant]
  10. IBUPROFEN [Concomitant]
  11. ROXANOL [Concomitant]
  12. MS CONTIN [Concomitant]
  13. BISACODYL [Concomitant]
  14. MILK OF MAGNESIA TAB [Concomitant]
  15. MIRALAX [Concomitant]
  16. LORAZEPAM [Concomitant]
  17. PSEUDOEPHEDRINE [Concomitant]
  18. ZOLOFT [Concomitant]
  19. SENNA [Concomitant]
  20. OXYCODONE HCL [Concomitant]
  21. DURAGESIC-100 [Concomitant]
  22. LASIX [Concomitant]
  23. PROCHLORPERAZINE [Concomitant]
  24. NYSTATIN [Concomitant]
  25. FENTANYL-100 [Concomitant]
  26. SCOPOLAMINE [Concomitant]
  27. PARADEX [Concomitant]

REACTIONS (14)
  - ANXIETY [None]
  - BONE DISORDER [None]
  - BONE PAIN [None]
  - DEFORMITY [None]
  - EMOTIONAL DISTRESS [None]
  - ENDODONTIC PROCEDURE [None]
  - HYPOPHAGIA [None]
  - METASTASES TO LIVER [None]
  - MOUTH HAEMORRHAGE [None]
  - OSTEONECROSIS [None]
  - PAIN [None]
  - SCIATICA [None]
  - TOOTH EROSION [None]
  - TOOTH EXTRACTION [None]
